FAERS Safety Report 15198121 (Version 1)
Quarter: 2018Q4

REPORT INFORMATION
  Report Type: Spontaneous
  Country: US (occurrence: US)
  Receive Date: 20180725
  Receipt Date: 20180725
  Transmission Date: 20190204
  Serious: Yes (Hospitalization)
  Sender: FDA-Public Use
  Company Number: US-ABBVIE-17P-163-2192523-00

PATIENT
  Sex: Female

DRUGS (2)
  1. SANDOZ AMOXICILLIN [Suspect]
     Active Substance: AMOXICILLIN
     Indication: PRODUCT USED FOR UNKNOWN INDICATION
     Route: 065
  2. SYNTHROID [Suspect]
     Active Substance: LEVOTHYROXINE SODIUM
     Indication: PRODUCT USED FOR UNKNOWN INDICATION
     Route: 065
     Dates: end: 1997

REACTIONS (6)
  - Paraesthesia [Unknown]
  - Tinnitus [Unknown]
  - Pyrexia [Unknown]
  - Hospitalisation [Unknown]
  - Fatigue [Unknown]
  - Malaise [Unknown]
